FAERS Safety Report 8757182 (Version 1)
Quarter: 2012Q4

REPORT INFORMATION
  Report Type: 
  Country: US (occurrence: US)
  Receive Date: 20120829
  Receipt Date: 20120829
  Transmission Date: 20130627
  Serious: No
  Sender: FDA-Public Use
  Company Number: US-PFIZER INC-2012208797

PATIENT
  Age: 70 Year
  Sex: Male
  Weight: 131.07 kg

DRUGS (4)
  1. ATORVASTATIN CALCIUM [Suspect]
     Indication: BLOOD CHOLESTEROL INCREASED
     Dosage: 20 mg, daily
     Dates: start: 20120820, end: 20120822
  2. LEVODOPA-CARBIDOPA [Concomitant]
     Indication: HYPERTENSION
     Dosage: 3 tablets of [carbidopa 25 mg]/ [levodopa 100 mg], 2x/day
  3. GLIPIZIDE [Concomitant]
     Indication: DIABETES MELLITUS
     Dosage: 10 mg, 2x/day
  4. ROPINIROLE [Concomitant]
     Indication: HYPERTENSION
     Dosage: 2 mg, daily
     Dates: start: 2012

REACTIONS (1)
  - Insomnia [Recovered/Resolved]
